FAERS Safety Report 8022035-2 (Version None)
Quarter: 2012Q1

REPORT INFORMATION
  Report Type: 
  Country: None (occurrence: None)
  Receive Date: 20120104
  Receipt Date: 20111230
  Transmission Date: 20120608
  Serious: No
  Sender: FDA-Public Use
  Company Number: US-BAYER-2012-000697

PATIENT
  Age: 43 Year
  Sex: Female

DRUGS (1)
  1. AVELOX [Suspect]
     Indication: SINUSITIS
     Dosage: 1 U, UNK
     Route: 048
     Dates: start: 20111230

REACTIONS (3)
  - NERVOUSNESS [None]
  - AGITATION [None]
  - FEELING JITTERY [None]
